FAERS Safety Report 17207921 (Version 2)
Quarter: 2020Q4

REPORT INFORMATION
  Report Type: Spontaneous
  Country: US (occurrence: US)
  Receive Date: 20191227
  Receipt Date: 20201103
  Transmission Date: 20210113
  Serious: Yes (Hospitalization, Other)
  Sender: FDA-Public Use
  Company Number: US-ASTRAZENECA-2019SF85158

PATIENT
  Age: 18114 Day
  Sex: Male
  Weight: 102.1 kg

DRUGS (77)
  1. XIGDUO XR [Suspect]
     Active Substance: DAPAGLIFLOZIN PROPANEDIOL\METFORMIN HYDROCHLORIDE
     Indication: TYPE 2 DIABETES MELLITUS
     Route: 048
     Dates: start: 201504, end: 201709
  2. XIGDUO XR [Suspect]
     Active Substance: DAPAGLIFLOZIN PROPANEDIOL\METFORMIN HYDROCHLORIDE
     Indication: TYPE 2 DIABETES MELLITUS
     Dosage: 5/1000 MG DAILY
     Route: 048
     Dates: start: 20170721
  3. XIGDUO XR [Suspect]
     Active Substance: DAPAGLIFLOZIN PROPANEDIOL\METFORMIN HYDROCHLORIDE
     Indication: WEIGHT DECREASED
     Dosage: 5/1000 MG DAILY
     Route: 048
     Dates: start: 20170721
  4. METFORMIN [Concomitant]
     Active Substance: METFORMIN HYDROCHLORIDE
  5. LINAGLIPTIN [Concomitant]
     Active Substance: LINAGLIPTIN
  6. MIRALAX [Concomitant]
     Active Substance: POLYETHYLENE GLYCOL 3350
  7. LEVAQUIN [Concomitant]
     Active Substance: LEVOFLOXACIN
  8. HYDROMORPHONE [Concomitant]
     Active Substance: HYDROMORPHONE
  9. FENTANYL. [Concomitant]
     Active Substance: FENTANYL
  10. KETOROLAC [Concomitant]
     Active Substance: KETOROLAC TROMETHAMINE
  11. MORPHINE SULPHATE [Concomitant]
     Active Substance: MORPHINE SULFATE
  12. ESCITALOPRAM [Concomitant]
     Active Substance: ESCITALOPRAM OXALATE
  13. CIALIS [Concomitant]
     Active Substance: TADALAFIL
  14. TOBRADEX [Concomitant]
     Active Substance: DEXAMETHASONE\TOBRAMYCIN
  15. GLIPIZIDE. [Concomitant]
     Active Substance: GLIPIZIDE
  16. LISINOPRIL. [Concomitant]
     Active Substance: LISINOPRIL
  17. NORVASC [Concomitant]
     Active Substance: AMLODIPINE BESYLATE
  18. BISACODYL. [Concomitant]
     Active Substance: BISACODYL
  19. ATARAX [Concomitant]
     Active Substance: HYDROXYZINE HYDROCHLORIDE
  20. BENADRYL [Concomitant]
     Active Substance: DIPHENHYDRAMINE HYDROCHLORIDE
  21. D50W [Concomitant]
  22. PROTONIX [Concomitant]
     Active Substance: PANTOPRAZOLE SODIUM
  23. RAMELTEON [Concomitant]
     Active Substance: RAMELTEON
  24. SULINDAC. [Concomitant]
     Active Substance: SULINDAC
  25. EMPAGLIFLOZIN [Concomitant]
     Active Substance: EMPAGLIFLOZIN
  26. LOVENOX [Concomitant]
     Active Substance: ENOXAPARIN SODIUM
  27. DILAUDID [Concomitant]
     Active Substance: HYDROMORPHONE HYDROCHLORIDE
  28. PRANDIAL [Concomitant]
  29. LACTIC ACID. [Concomitant]
     Active Substance: LACTIC ACID
  30. IBUPROFEN. [Concomitant]
     Active Substance: IBUPROFEN
  31. LACTATED RINGERS SOLUTION [Concomitant]
     Active Substance: CALCIUM CHLORIDE\POTASSIUM CHLORIDE\SODIUM CHLORIDE\SODIUM LACTATE
  32. BACTRIM [Concomitant]
     Active Substance: SULFAMETHOXAZOLE\TRIMETHOPRIM
  33. GENTAMYCIN [Concomitant]
     Active Substance: GENTAMICIN
  34. ALPRAZOLAM. [Concomitant]
     Active Substance: ALPRAZOLAM
  35. SIMVASTATIN. [Concomitant]
     Active Substance: SIMVASTATIN
  36. LEVITRA [Concomitant]
     Active Substance: VARDENAFIL HYDROCHLORIDE
  37. GABAPENTIN. [Concomitant]
     Active Substance: GABAPENTIN
  38. MORPHINE [Concomitant]
     Active Substance: MORPHINE
  39. METRONIDAZOLE. [Concomitant]
     Active Substance: METRONIDAZOLE
  40. TYLENOL [Concomitant]
     Active Substance: ACETAMINOPHEN
  41. IMIPENEM [Concomitant]
     Active Substance: IMIPENEM
  42. MEPERIDINE [Concomitant]
     Active Substance: MEPERIDINE
  43. VIAGRA [Concomitant]
     Active Substance: SILDENAFIL CITRATE
  44. ATROPINE SULF [Concomitant]
  45. DESOXIMETASONE. [Concomitant]
     Active Substance: DESOXIMETASONE
  46. XIGDUO XR [Suspect]
     Active Substance: DAPAGLIFLOZIN PROPANEDIOL\METFORMIN HYDROCHLORIDE
     Indication: WEIGHT DECREASED
     Route: 048
     Dates: start: 201504, end: 201709
  47. XIGDUO XR [Suspect]
     Active Substance: DAPAGLIFLOZIN PROPANEDIOL\METFORMIN HYDROCHLORIDE
     Indication: BLOOD PRESSURE ABNORMAL
     Route: 048
     Dates: start: 201504, end: 201709
  48. FLUIMUCIL ANTIBIOTIC [Concomitant]
  49. LANTUS [Concomitant]
     Active Substance: INSULIN GLARGINE
  50. NORCO [Concomitant]
     Active Substance: ACETAMINOPHEN\HYDROCODONE BITARTRATE
  51. VANCOMYCIN [Concomitant]
     Active Substance: VANCOMYCIN
  52. LABETALOL [Concomitant]
     Active Substance: LABETALOL\LABETALOL HYDROCHLORIDE
  53. CLINDAMYCIN. [Concomitant]
     Active Substance: CLINDAMYCIN
  54. TYLENOL WITH CODEINE [Concomitant]
     Active Substance: ACETAMINOPHEN\CODEINE PHOSPHATE
  55. CEFEPIME [Concomitant]
     Active Substance: CEFEPIME HYDROCHLORIDE
  56. BESIVANCE [Concomitant]
     Active Substance: BESIFLOXACIN
  57. ILEVRO [Concomitant]
     Active Substance: NEPAFENAC
  58. XIGDUO XR [Suspect]
     Active Substance: DAPAGLIFLOZIN PROPANEDIOL\METFORMIN HYDROCHLORIDE
     Indication: BLOOD PRESSURE ABNORMAL
     Dosage: 5/1000 MG DAILY
     Route: 048
     Dates: start: 20170721
  59. COLACE [Concomitant]
     Active Substance: DOCUSATE SODIUM
  60. INSULIN LISPRO [Concomitant]
     Active Substance: INSULIN LISPRO
  61. GLUCOSE [Concomitant]
     Active Substance: DEXTROSE
  62. SALINE [Concomitant]
     Active Substance: SODIUM CHLORIDE
  63. MIDAZOLAM. [Concomitant]
     Active Substance: MIDAZOLAM
  64. PROMETHAZINE [Concomitant]
     Active Substance: PROMETHAZINE HYDROCHLORIDE
  65. LATANOPROST. [Concomitant]
     Active Substance: LATANOPROST
  66. PREDNISOLONE. [Concomitant]
     Active Substance: PREDNISOLONE
  67. GLUMETZA [Concomitant]
     Active Substance: METFORMIN HYDROCHLORIDE
  68. ASPIRIN. [Concomitant]
     Active Substance: ASPIRIN
  69. WALFEX [Concomitant]
  70. SYNJARDY [Concomitant]
     Active Substance: EMPAGLIFLOZIN\METFORMIN HYDROCHLORIDE
  71. ZYVOX [Concomitant]
     Active Substance: LINEZOLID
  72. GLIMEPIRIDE. [Concomitant]
     Active Substance: GLIMEPIRIDE
  73. IMIPENEM AND CILASTATIN [Concomitant]
     Active Substance: CILASTATIN SODIUM\IMIPENEM
  74. ONDANSETRON [Concomitant]
     Active Substance: ONDANSETRON
  75. DUREZOL [Concomitant]
     Active Substance: DIFLUPREDNATE
  76. FEXOFENADINE [Concomitant]
     Active Substance: FEXOFENADINE HYDROCHLORIDE
  77. PIROXICAM. [Concomitant]
     Active Substance: PIROXICAM

REACTIONS (2)
  - Fournier^s gangrene [Unknown]
  - Scrotal abscess [Unknown]

NARRATIVE: CASE EVENT DATE: 20150919
